FAERS Safety Report 4884461-X (Version None)
Quarter: 2006Q1

REPORT INFORMATION
  Report Type: 
  Country: None (occurrence: None)
  Receive Date: 20060119
  Receipt Date: 20051012
  Transmission Date: 20060701
  Serious: Yes (Hospitalization)
  Sender: FDA-Public Use
  Company Number: US-BOEHRINGER INGELHEIM PHARMACEUTICALS, INC.-2005-BP-18241BP

PATIENT
  Sex: Male

DRUGS (16)
  1. MOBIC [Suspect]
     Indication: OSTEOARTHRITIS
     Route: 048
     Dates: start: 20050101, end: 20050813
  2. MOBIC [Suspect]
     Indication: ARTHRALGIA
  3. SINEMET [Concomitant]
  4. AVANDIA [Concomitant]
  5. INSULIN [Concomitant]
  6. DETROL [Concomitant]
  7. CARBIDOPA [Concomitant]
  8. NOVOLIN [Concomitant]
  9. NORVASC [Concomitant]
  10. POTASSIUM CHLORIDE [Concomitant]
  11. LISINOPRIL [Concomitant]
  12. GABAPENTIN [Concomitant]
  13. HUMALOG [Concomitant]
  14. MAGNESIUM [Concomitant]
  15. GLUCOSAMINE [Concomitant]
  16. OCUVITE [Concomitant]

REACTIONS (3)
  - BLOOD POTASSIUM DECREASED [None]
  - TACHYPNOEA [None]
  - WEIGHT INCREASED [None]
